FAERS Safety Report 18559170 (Version 9)
Quarter: 2023Q1

REPORT INFORMATION
  Report Type: Spontaneous
  Country: GB (occurrence: GB)
  Receive Date: 20201130
  Receipt Date: 20230203
  Transmission Date: 20230418
  Serious: Yes (Death, Disabling, Other)
  Sender: FDA-Public Use
  Company Number: GB-VIIV HEALTHCARE ULC-GB2020EME232510

PATIENT

DRUGS (8)
  1. TIVICAY [Suspect]
     Active Substance: DOLUTEGRAVIR SODIUM
     Indication: Product used for unknown indication
     Dosage: 50 MG, QD
     Route: 065
  2. DARUNAVIR [Suspect]
     Active Substance: DARUNAVIR
     Indication: Product used for unknown indication
     Dosage: 600 MG, BID
     Route: 048
  3. DESCOVY [Suspect]
     Active Substance: EMTRICITABINE\TENOFOVIR ALAFENAMIDE FUMARATE
     Indication: Product used for unknown indication
     Dosage: 1 DF, QD
     Route: 065
  4. TYBOST [Suspect]
     Active Substance: COBICISTAT
     Indication: Product used for unknown indication
     Dosage: 150 MG, BID
     Route: 065
  5. TYBOST [Suspect]
     Active Substance: COBICISTAT
     Dosage: 300 MG, QD
     Route: 065
  6. SYMTUZA [Suspect]
     Active Substance: COBICISTAT\DARUNAVIR\EMTRICITABINE\TENOFOVIR ALAFENAMIDE
     Indication: Product used for unknown indication
     Dosage: 10 MG, QD
     Route: 048
  7. COBICISTAT [Suspect]
     Active Substance: COBICISTAT
     Indication: Product used for unknown indication
     Dosage: 150 MG, BID
     Route: 065
  8. COBICISTAT [Suspect]
     Active Substance: COBICISTAT
     Dosage: 300 MG, QD
     Route: 065

REACTIONS (3)
  - Death [Fatal]
  - Disability [Unknown]
  - Aphasia [Unknown]
